FAERS Safety Report 8664517 (Version 3)
Quarter: 2012Q4

REPORT INFORMATION
  Report Type: 
  Country: BE (occurrence: BE)
  Receive Date: 20120713
  Receipt Date: 20120912
  Transmission Date: 20130627
  Serious: Yes (Hospitalization)
  Sender: FDA-Public Use
  Company Number: BE-BAXTER-2012BAX010461

PATIENT
  Age: 13 Year
  Sex: Male

DRUGS (4)
  1. FEIBA [Suspect]
     Indication: HEMOPHILIA A
     Dosage: 3000 UE per day
     Route: 042
     Dates: start: 20120703
  2. FEIBA [Suspect]
     Dosage: 3000 UE per day
     Route: 042
     Dates: start: 201206
  3. FEIBA [Suspect]
     Dosage: 3000 UE per day
     Route: 042
     Dates: start: 20120704
  4. NOVOSEVEN [Suspect]
     Indication: HEMOPHILIA A
     Route: 065
     Dates: start: 201206, end: 20120627

REACTIONS (3)
  - Abdominal pain [Recovered/Resolved]
  - Haemorrhage [Recovered/Resolved]
  - Pallor [Unknown]
